FAERS Safety Report 12548888 (Version 1)
Quarter: 2016Q3

REPORT INFORMATION
  Report Type: Spontaneous
  Country: GB (occurrence: GB)
  Receive Date: 20160712
  Receipt Date: 20160712
  Transmission Date: 20161109
  Serious: Yes (Other)
  Sender: FDA-Public Use
  Company Number: GB-ASTELLAS-2016US024577

PATIENT
  Age: 82 Year
  Sex: Female
  Weight: 65 kg

DRUGS (4)
  1. BETMIGA [Interacting]
     Active Substance: MIRABEGRON
     Dosage: 50 MG, AT NIGHT
     Route: 048
  2. OXYNORM [Interacting]
     Active Substance: OXYCODONE HYDROCHLORIDE
     Indication: PAIN
     Route: 048
  3. OXYCONTIN [Interacting]
     Active Substance: OXYCODONE HYDROCHLORIDE
     Indication: PAIN
     Route: 048
  4. BETMIGA [Suspect]
     Active Substance: MIRABEGRON
     Indication: HYPERTONIC BLADDER
     Dosage: 50 MG, AT NIGHT
     Route: 048
     Dates: start: 20151005, end: 201606

REACTIONS (3)
  - Pain [Not Recovered/Not Resolved]
  - Dry mouth [Unknown]
  - Drug interaction [Unknown]

NARRATIVE: CASE EVENT DATE: 20151101
